FAERS Safety Report 5394066-2 (Version None)
Quarter: 2007Q3

REPORT INFORMATION
  Report Type: 
  Country: None (occurrence: None)
  Receive Date: 20070723
  Receipt Date: 20070411
  Transmission Date: 20080115
  Serious: No
  Sender: FDA-Public Use
  Company Number: A0640255A

PATIENT
  Age: 76 Year
  Sex: Male

DRUGS (8)
  1. AVANDIA [Suspect]
     Dosage: 8MG PER DAY
     Route: 048
     Dates: start: 20070130
  2. PRANDIN [Concomitant]
  3. PLAVIX [Concomitant]
  4. ATACAND [Concomitant]
  5. PROPRANOLOL [Concomitant]
  6. LIPITOR [Concomitant]
  7. FOLGARD [Concomitant]
  8. UNSPECIFIED MEDICATION [Concomitant]

REACTIONS (4)
  - HYPERGLYCAEMIA [None]
  - MIDDLE INSOMNIA [None]
  - OEDEMA [None]
  - TREMOR [None]
